FAERS Safety Report 19814873 (Version 1)
Quarter: 2021Q3

REPORT INFORMATION
  Report Type: Spontaneous
  Country: US (occurrence: US)
  Receive Date: 20210910
  Receipt Date: 20210910
  Transmission Date: 20211014
  Serious: Yes (Other)
  Sender: FDA-Public Use
  Company Number: US-PFIZER INC-202101103466

PATIENT
  Age: 67 Year
  Sex: Male

DRUGS (1)
  1. BEVACIZUMAB. [Suspect]
     Active Substance: BEVACIZUMAB
     Indication: AGE-RELATED MACULAR DEGENERATION
     Dosage: UNK (INTRAVITREAL INJECTION)
     Route: 031

REACTIONS (5)
  - Anterior chamber cell [Recovering/Resolving]
  - Hypotony of eye [Recovering/Resolving]
  - Ciliary body disorder [Recovering/Resolving]
  - Vitreous haemorrhage [Recovering/Resolving]
  - Off label use [Recovering/Resolving]
